FAERS Safety Report 12101435 (Version 2)
Quarter: 2016Q2

REPORT INFORMATION
  Report Type: Spontaneous
  Country: US (occurrence: US)
  Receive Date: 20160222
  Receipt Date: 20160506
  Transmission Date: 20160815
  Serious: Yes (Death)
  Sender: FDA-Public Use
  Company Number: US-ELI_LILLY_AND_COMPANY-US201602006468

PATIENT
  Age: 69 Year
  Sex: Female

DRUGS (2)
  1. PORTRAZZA [Suspect]
     Active Substance: NECITUMUMAB
     Indication: METASTASES TO BONE
  2. PORTRAZZA [Suspect]
     Active Substance: NECITUMUMAB
     Indication: NON-SMALL CELL LUNG CANCER STAGE IV
     Dosage: UNK
     Route: 065
     Dates: start: 20160126

REACTIONS (3)
  - Death [Fatal]
  - Chest pain [Unknown]
  - Off label use [Unknown]

NARRATIVE: CASE EVENT DATE: 20160215
